FAERS Safety Report 6031322-9 (Version None)
Quarter: 2008Q4

REPORT INFORMATION
  Report Type: 
  Country: None (occurrence: None)
  Receive Date: 20081224
  Receipt Date: 20080530
  Transmission Date: 20090506
  Serious: Yes (Hospitalization, Other)
  Sender: FDA-Public Use
  Company Number: US-CVT-080090

PATIENT
  Age: 73 Year
  Sex: Female
  Weight: 90.2 kg

DRUGS (6)
  1. RANEXA [Suspect]
     Indication: ANGINA PECTORIS
     Dosage: 500 MG, BID, ORAL
     Route: 048
     Dates: start: 20071217, end: 20080610
  2. AMIODARONE HCL [Suspect]
     Indication: ATRIAL FIBRILLATION
     Dosage: 200 MG, QD, ORAL
     Route: 048
     Dates: start: 20071129, end: 20080610
  3. ZESTORETIC [Concomitant]
  4. COUMADIN [Concomitant]
  5. ASPIRIN [Concomitant]
  6. ANTIVERT /00007101/ (MECLOZINE HYDROCHOLRIDE, NICOTINIC ACID) [Concomitant]

REACTIONS (6)
  - DIZZINESS [None]
  - ELECTROCARDIOGRAM QT PROLONGED [None]
  - ORTHOSTATIC HYPOTENSION [None]
  - PNEUMONIA [None]
  - SKIN LACERATION [None]
  - SYNCOPE [None]
